FAERS Safety Report 6183194-X (Version None)
Quarter: 2009Q2

REPORT INFORMATION
  Report Type: 
  Country: None (occurrence: None)
  Receive Date: 20090507
  Receipt Date: 20090423
  Transmission Date: 20091009
  Serious: Yes (Hospitalization, Disabling)
  Sender: FDA-Public Use
  Company Number: FR-ROCHE-606724

PATIENT
  Sex: Female
  Weight: 38 kg

DRUGS (17)
  1. ENFUVIRTIDE [Suspect]
     Indication: HIV INFECTION
     Route: 058
     Dates: start: 20081114
  2. SUSTIVA [Suspect]
     Indication: HIV INFECTION
     Dosage: FREQUENCY REPORTED AS DAY
     Route: 065
     Dates: start: 20081114
  3. TRUVADA [Suspect]
     Indication: HIV INFECTION
     Route: 048
     Dates: start: 20081114
  4. RIFATER [Suspect]
     Indication: HIV INFECTION
     Route: 065
     Dates: start: 20081114
  5. MYAMBUTOL [Suspect]
     Indication: HIV INFECTION
     Route: 065
     Dates: start: 20081114
  6. BACTRIM [Concomitant]
     Dates: start: 20081114
  7. SPECIAFOLDINE [Concomitant]
     Dates: start: 20081106
  8. SOLU-MEDROL [Concomitant]
     Dates: start: 20081201
  9. SOLUPRED [Concomitant]
     Dates: start: 20081201
  10. RIFADIN [Concomitant]
     Dosage: DRUG NAME REPORTED AS RIDINE 600.
     Dates: start: 20081114
  11. MYAMBUTOL [Concomitant]
     Route: 065
     Dates: start: 20081114
  12. NEXIUM [Concomitant]
     Route: 065
  13. NEURONTIN [Concomitant]
     Dosage: DRUG NAME REPORTED AS NEURONTIN 400.
     Route: 065
  14. PIRILENE [Concomitant]
     Dosage: DRUG NAME REPORTED AS PIRILENE 150.
  15. RIMIFON [Concomitant]
     Dosage: DRUG NAME REPORTED AS RIMIFON 250
  16. LAROXYL [Concomitant]
  17. DURAGESIC-100 [Concomitant]

REACTIONS (2)
  - GENERAL PHYSICAL HEALTH DETERIORATION [None]
  - PYREXIA [None]
